FAERS Safety Report 17715951 (Version 1)
Quarter: 2020Q2

REPORT INFORMATION
  Report Type: Spontaneous
  Country: PT (occurrence: PT)
  Receive Date: 20200428
  Receipt Date: 20200428
  Transmission Date: 20200714
  Serious: Yes (Other)
  Sender: FDA-Public Use
  Company Number: PT-AUROBINDO-AUR-APL-2020-020483

PATIENT
  Age: 15 Year
  Sex: Female

DRUGS (5)
  1. NIFEDIPINE. [Suspect]
     Active Substance: NIFEDIPINE
     Indication: DIFFUSE MESANGIAL SCLEROSIS
     Dosage: UNK
     Route: 065
  2. LOSARTAN. [Suspect]
     Active Substance: LOSARTAN
     Indication: DIFFUSE MESANGIAL SCLEROSIS
     Dosage: UNK
     Route: 065
  3. ENALAPRIL [Suspect]
     Active Substance: ENALAPRIL
     Indication: DIFFUSE MESANGIAL SCLEROSIS
     Dosage: UNK
     Route: 065
  4. CALCITRIOL. [Suspect]
     Active Substance: CALCITRIOL
     Indication: DIFFUSE MESANGIAL SCLEROSIS
     Dosage: UNK
     Route: 065
  5. OESTROGEN [Concomitant]
     Indication: PRODUCT USED FOR UNKNOWN INDICATION
     Dosage: UNK
     Route: 065

REACTIONS (4)
  - Off label use [Unknown]
  - No adverse event [Unknown]
  - Intentional product use issue [Unknown]
  - Chronic kidney disease [Unknown]
